FAERS Safety Report 6666341-2 (Version None)
Quarter: 2010Q1

REPORT INFORMATION
  Report Type: 
  Country: None (occurrence: None)
  Receive Date: 20100331
  Receipt Date: 20100319
  Transmission Date: 20100710
  Serious: Yes (Other)
  Sender: FDA-Public Use
  Company Number: 1022556-2010-00019

PATIENT
  Age: 55 Year
  Sex: Female

DRUGS (3)
  1. MELATONEX [Suspect]
     Dosage: 3 MG TABLETS, PO
     Route: 048
     Dates: start: 20100315, end: 20100317
  2. ZOLPIDEM [Concomitant]
  3. FLUOXETINE [Concomitant]

REACTIONS (2)
  - DRUG INTERACTION [None]
  - ROAD TRAFFIC ACCIDENT [None]
